FAERS Safety Report 15939860 (Version 2)
Quarter: 2019Q1

REPORT INFORMATION
  Report Type: Spontaneous
  Country: CA (occurrence: CA)
  Receive Date: 20190208
  Receipt Date: 20190215
  Transmission Date: 20190417
  Serious: Yes (Other)
  Sender: FDA-Public Use
  Company Number: CA-PFIZER INC-2019053812

PATIENT
  Age: 51 Year
  Sex: Male
  Weight: 163 kg

DRUGS (18)
  1. CYCLOBENZAPRINE HCL [Concomitant]
     Active Substance: CYCLOBENZAPRINE HYDROCHLORIDE
     Dosage: 10 MG (1 TABLET), 1X/DAY (EVERY NIGHT)
     Route: 048
  2. GLYBURIDE. [Concomitant]
     Active Substance: GLYBURIDE
     Dosage: 5 MG (1 TABLET), 2X/DAY
     Route: 048
  3. METFORMIN HCL [Concomitant]
     Active Substance: METFORMIN HYDROCHLORIDE
     Dosage: 1000 MG (2 TABLETS), 2X/DAY
     Route: 048
  4. ACETYLSALICYLIC ACID [Concomitant]
     Active Substance: ASPIRIN
     Dosage: 81 MG (1 TABLET), DAILY
     Route: 048
  5. VITAMIN D [ERGOCALCIFEROL] [Concomitant]
     Active Substance: ERGOCALCIFEROL
     Dosage: 2 DF (2 TABLETS), DAILY
     Route: 048
  6. BRENZYS [Concomitant]
     Active Substance: ETANERCEPT
     Dosage: UNK UNK, WEEKLY
     Route: 058
     Dates: start: 201801, end: 20190130
  7. GABAPENTIN. [Suspect]
     Active Substance: GABAPENTIN
     Dosage: 300 MG (1 TABLET), 1X/DAY (EVERY NIGHT)
     Route: 048
  8. OYSTER SHELL CALCIUM [Concomitant]
     Active Substance: CALCIUM
     Dosage: 1 DF (1 TABLET), 2X/DAY
     Route: 048
  9. TAMSULOSIN HCL [Concomitant]
     Active Substance: TAMSULOSIN HYDROCHLORIDE
     Dosage: 0.4 MG (1 TABLET), 1X/DAY (EVERY NIGHT)
     Route: 048
  10. SIMVASTATIN. [Concomitant]
     Active Substance: SIMVASTATIN
     Dosage: 40 MG (1 TABLET), 1X/DAY
     Route: 048
  11. RANITIDINE HCL [Concomitant]
     Active Substance: RANITIDINE HYDROCHLORIDE
     Dosage: 150 MG (1 TABLET), 2X/DAY
     Route: 048
  12. METOPROLOL TARTRATE. [Concomitant]
     Active Substance: METOPROLOL TARTRATE
     Dosage: 200 MG (2 TABLETS), 2X/DAY
     Route: 048
  13. DULOXETINE HCL [Concomitant]
     Active Substance: DULOXETINE HYDROCHLORIDE
     Dosage: 50 MG (1 TABLET), 1X/DAY
     Route: 048
  14. RAMIPRIL. [Concomitant]
     Active Substance: RAMIPRIL
     Dosage: 10 MG, 1X/DAY
     Route: 048
  15. LINAGLIPTIN [Concomitant]
     Active Substance: LINAGLIPTIN
     Dosage: 5 MG (1 TABLET), 1X/DAY
     Route: 048
  16. DABIGATRAN ETEXILATE MESYLATE [Concomitant]
     Active Substance: DABIGATRAN ETEXILATE MESYLATE
     Dosage: 150 MG (1 TABLET), 1X/DAY
     Route: 048
  17. CELECOXIB. [Suspect]
     Active Substance: CELECOXIB
     Dosage: 200 MG (1 TABLET), AS NEEDED (1X/DAY)
     Route: 048
  18. TYLENOL WITH CODEINE [Concomitant]
     Active Substance: ACETAMINOPHEN\CODEINE PHOSPHATE
     Dosage: 1 DF (TABLET), AS NEEDED (5 TIMES A DAY)
     Route: 048

REACTIONS (2)
  - Spinal pain [Unknown]
  - Sacroiliitis [Unknown]
